FAERS Safety Report 4288098-5 (Version None)
Quarter: 2004Q1

REPORT INFORMATION
  Report Type: 
  Country: None (occurrence: None)
  Receive Date: 20040209
  Receipt Date: 20030816
  Transmission Date: 20041129
  Serious: No
  Sender: FDA-Public Use
  Company Number: US-GLAXOSMITHKLINE-A0422264A

PATIENT
  Age: 54 Year
  Sex: Male

DRUGS (2)
  1. PAXIL [Suspect]
     Dates: start: 20000101
  2. CAFFEINE [Suspect]

REACTIONS (1)
  - DRUG INEFFECTIVE [None]
